FAERS Safety Report 23230795 (Version 1)
Quarter: 2023Q4

REPORT INFORMATION
  Report Type: Spontaneous
  Country: US (occurrence: US)
  Receive Date: 20231127
  Receipt Date: 20231127
  Transmission Date: 20240110
  Serious: No
  Sender: FDA-Public Use
  Company Number: US-SA-SAC20231121000947

PATIENT
  Sex: Female

DRUGS (9)
  1. DUPIXENT [Suspect]
     Active Substance: DUPILUMAB
     Indication: Dermatitis atopic
     Dosage: 300 MG, QOW
     Route: 058
     Dates: start: 20210107
  2. CLOBETASOL [Concomitant]
     Active Substance: CLOBETASOL
  3. LAMOTRIGINE [Concomitant]
     Active Substance: LAMOTRIGINE
  4. VENTOLIN HFA [Concomitant]
     Active Substance: ALBUTEROL SULFATE
  5. TRIAMCINOLONE [Concomitant]
     Active Substance: TRIAMCINOLONE
  6. NORTRIPTYLINE [Concomitant]
     Active Substance: NORTRIPTYLINE
  7. HYDROXYZINE HYDROCHLORIDE [Concomitant]
     Active Substance: HYDROXYZINE HYDROCHLORIDE
  8. FLUOROMETHOLONE [Concomitant]
     Active Substance: FLUOROMETHOLONE
  9. FLUCELVAX QUADRIVALENT NOS [Concomitant]
     Active Substance: INFLUENZA A VIRUS A/BRISBANE/10/2010 (H1N1) ANTIGEN (MDCK CELL DERIVED, PROPIOLACTONE INACTIVATED)\I

REACTIONS (4)
  - Infection [Unknown]
  - Pyrexia [Unknown]
  - Hyperhidrosis [Unknown]
  - Sleep disorder [Unknown]
